FAERS Safety Report 19785745 (Version 1)
Quarter: 2021Q3

REPORT INFORMATION
  Report Type: Spontaneous
  Country: DE (occurrence: DE)
  Receive Date: 20210903
  Receipt Date: 20210903
  Transmission Date: 20211014
  Serious: Yes (Hospitalization, Other)
  Sender: FDA-Public Use
  Company Number: DE-ACCORD-237019

PATIENT
  Age: 74 Year
  Sex: Female

DRUGS (7)
  1. ATORVASTATIN [Concomitant]
     Active Substance: ATORVASTATIN
     Dosage: 40 MG, 0?0?1?0, TABLETS
     Route: 048
  2. BISOPROLOL [Concomitant]
     Active Substance: BISOPROLOL
     Dosage: 2.5 MG, 1?0?1?0, TABLETS
     Route: 048
  3. LETROZOLE. [Suspect]
     Active Substance: LETROZOLE
     Indication: PRODUCT USED FOR UNKNOWN INDICATION
     Dosage: 2.5 MG, 1?0?0?0, TABLETS
     Route: 048
  4. TORASEMIDE [Concomitant]
     Active Substance: TORSEMIDE
     Dosage: 10 MG, 1?1?0?0, TABLETS
     Route: 048
  5. CALCIUM CARBONATE\RISEDRONATE SODIUM [Concomitant]
     Active Substance: CALCIUM CARBONATE\RISEDRONATE SODIUM
     Dosage: 35MG + 1000MG / 880I.U., 1000, 0.022, 32.5 MG, ACCORDING TO SCHEME, COMBINATION PACK
     Route: 048
  6. CANDESARTAN/HYDROCHLOROTHIAZIDE [Concomitant]
     Active Substance: CANDESARTAN CILEXETIL\HYDROCHLOROTHIAZIDE
     Dosage: 16, 12.5 MG, 1?0?0?0, TABLETS
     Route: 048
  7. PANTOPRAZOLE [Concomitant]
     Active Substance: PANTOPRAZOLE
     Dosage: 40 MG, 1?0?0?0, PROLONGED?RELEASE TABLETS
     Route: 048

REACTIONS (8)
  - Fatigue [Unknown]
  - Transaminases increased [Unknown]
  - Waist circumference increased [Unknown]
  - Dyspnoea [Unknown]
  - General physical health deterioration [Unknown]
  - Oedema peripheral [Unknown]
  - Product used for unknown indication [Unknown]
  - Hepatomegaly [Unknown]
